FAERS Safety Report 6795053-X (Version None)
Quarter: 2010Q2

REPORT INFORMATION
  Report Type: 
  Country: None (occurrence: None)
  Receive Date: 20100625
  Receipt Date: 20100615
  Transmission Date: 20101027
  Serious: Yes (Hospitalization, Other)
  Sender: FDA-Public Use
  Company Number: PHHY2010JP39501

PATIENT
  Sex: Male

DRUGS (4)
  1. ICL670A ICL+DISTAB [Suspect]
     Indication: MYELODYSPLASTIC SYNDROME
     Dosage: 1000 MG/DAY
     Route: 048
     Dates: start: 20090302, end: 20090324
  2. ICL670A ICL+DISTAB [Suspect]
     Indication: IRON OVERLOAD
  3. NEORAL [Concomitant]
     Dosage: 250 MG, UNK
     Route: 048
     Dates: start: 20090302, end: 20090324
  4. GASTER D [Concomitant]
     Dosage: 40 MG, UNK
     Route: 048
     Dates: start: 20090302, end: 20090324

REACTIONS (6)
  - EOSINOPHIL COUNT INCREASED [None]
  - INFECTION [None]
  - LIVER DISORDER [None]
  - LYMPHOCYTE COUNT DECREASED [None]
  - RENAL FAILURE ACUTE [None]
  - SERUM FERRITIN INCREASED [None]
